FAERS Safety Report 5268388-X (Version None)
Quarter: 2007Q1

REPORT INFORMATION
  Report Type: 
  Country: None (occurrence: None)
  Receive Date: 20070319
  Receipt Date: 20070305
  Transmission Date: 20070707
  Serious: Yes (Hospitalization)
  Sender: FDA-Public Use
  Company Number: PHBS2007US04110

PATIENT
  Age: 16 Month
  Sex: Male

DRUGS (9)
  1. TOBRAMYCIN [Suspect]
     Indication: PSEUDOMONAS INFECTION
  2. TOBRAMYCIN [Suspect]
  3. CEFTAZIDIME [Concomitant]
     Route: 042
  4. AMOXICILLIN [Concomitant]
     Route: 048
  5. CLAVULANATE POTASSIUM [Concomitant]
     Route: 048
  6. CIPROFLOXACIN [Concomitant]
  7. AZITHROMYCIN [Concomitant]
  8. PREDNISONE [Concomitant]
     Dosage: 0.8 MG/KG, Q48H
  9. ANTIBIOTICS [Concomitant]
     Route: 042

REACTIONS (11)
  - BLOOD IMMUNOGLOBULIN E INCREASED [None]
  - BRONCHIAL OBSTRUCTION [None]
  - BRONCHOSPASM [None]
  - CHEST X-RAY ABNORMAL [None]
  - DRUG HYPERSENSITIVITY [None]
  - DYSPNOEA [None]
  - EOSINOPHILIA [None]
  - FORCED EXPIRATORY VOLUME DECREASED [None]
  - LUNG INFILTRATION [None]
  - PATHOGEN RESISTANCE [None]
  - WHEEZING [None]
